FAERS Safety Report 9037587 (Version 1)
Quarter: 2012Q4

REPORT INFORMATION
  Report Type: Spontaneous
  Country: US (occurrence: None)
  Receive Date: 20120904
  Receipt Date: 20120904
  Transmission Date: 20130627
  Serious: Yes (Other)
  Sender: FDA-Public Use
  Company Number: JPI-P-024016

PATIENT
  Age: 32 Year
  Sex: Female

DRUGS (3)
  1. XYREM (500 MILLIGRAM/MILLILITERS, SOLUTION) (SODIUM OXYBATE) [Suspect]
     Indication: DRUG USE FOR UNKNOWN INDICATION
     Dosage: (2.25 gm,  2 in 1 D)
     Route: 048
     Dates: start: 20030811
  2. XYREM (500 MILLIGRAM/MILLILITERS, SOLUTION) (SODIUM OXYBATE) [Suspect]
     Indication: DRUG USE FOR UNKNOWN INDICATION
     Dosage: (UNSPECIFIED DOSE CHANGE),  Oral
     Route: 048
  3. XYREM (500 MILLIGRAM/MILLILITERS, SOLUTION) (SODIUM OXYBATE) [Suspect]
     Indication: DRUG USE FOR UNKNOWN INDICATION
     Dosage: (3.75 gm,  2 in 1 D)
     Route: 048
     Dates: start: 20110802

REACTIONS (1)
  - Convulsion [None]
